FAERS Safety Report 4333073-5 (Version None)
Quarter: 2004Q1

REPORT INFORMATION
  Report Type: 
  Country: None (occurrence: None)
  Receive Date: 20040330
  Receipt Date: 20040318
  Transmission Date: 20041129
  Serious: No
  Sender: FDA-Public Use
  Company Number: 04P-163-0254163-00

PATIENT
  Age: 7 Year
  Sex: Female
  Weight: 32.7 kg

DRUGS (5)
  1. DEPAKENE [Suspect]
     Indication: CONVULSION
     Dosage: 1125 MG, 1 IN 1 D
  2. MONTELUKAST [Concomitant]
  3. BACLOFEN [Concomitant]
  4. LORAZEPAM [Concomitant]
  5. RANITIDINE [Concomitant]

REACTIONS (1)
  - HYPOALBUMINAEMIA [None]
